FAERS Safety Report 24917026 (Version 1)
Quarter: 2025Q1

REPORT INFORMATION
  Report Type: Report from Study
  Country: CA (occurrence: CA)
  Receive Date: 20250203
  Receipt Date: 20250203
  Transmission Date: 20250408
  Serious: Yes (Other)
  Sender: MYLAN
  Company Number: CA-MYLANLABS-2024M1091859

PATIENT
  Age: 50 Year
  Sex: Female
  Weight: 114 kg

DRUGS (9)
  1. CLOZAPINE [Suspect]
     Active Substance: CLOZAPINE
     Indication: Schizoaffective disorder
     Route: 065
     Dates: start: 202407, end: 20241007
  2. CLOZAPINE [Suspect]
     Active Substance: CLOZAPINE
     Dosage: 12.5 MILLIGRAM, HS
     Route: 048
     Dates: start: 202407
  3. CLOZAPINE [Suspect]
     Active Substance: CLOZAPINE
     Dosage: 37.5 MILLIGRAM, HS
     Route: 048
  4. CLOZAPINE [Suspect]
     Active Substance: CLOZAPINE
     Dosage: 100 MILLIGRAM, HS
     Route: 048
  5. CLOZAPINE [Suspect]
     Active Substance: CLOZAPINE
     Dosage: 200 MILLIGRAM, HS
     Route: 048
     Dates: end: 20240805
  6. ARIPIPRAZOLE [Concomitant]
     Active Substance: ARIPIPRAZOLE
     Dosage: 400 MILLIGRAM, Q3W
     Route: 030
  7. VALPROIC ACID [Concomitant]
     Active Substance: VALPROIC ACID
     Dosage: 750 MILLIGRAM, BID
     Route: 048
  8. OLANZAPINE [Concomitant]
     Active Substance: OLANZAPINE
     Dosage: 15 MILLIGRAM, HS
     Route: 048
  9. QUETIAPINE [Concomitant]
     Active Substance: QUETIAPINE
     Dosage: 225 MILLIGRAM, HS
     Route: 048

REACTIONS (8)
  - Myocarditis [Unknown]
  - Troponin increased [Unknown]
  - C-reactive protein increased [Unknown]
  - Oedema peripheral [Unknown]
  - Eosinophil count increased [Unknown]
  - White blood cell count increased [Unknown]
  - Pyrexia [Unknown]
  - Off label use [Unknown]

NARRATIVE: CASE EVENT DATE: 20240724
